FAERS Safety Report 7529685-8 (Version None)
Quarter: 2011Q2

REPORT INFORMATION
  Report Type: 
  Country: None (occurrence: None)
  Receive Date: 20110607
  Receipt Date: 20110520
  Transmission Date: 20111010
  Serious: Yes (Congenital Anomaly)
  Sender: FDA-Public Use
  Company Number: A0930279A

PATIENT
  Sex: Female

DRUGS (3)
  1. PAXIL [Suspect]
     Indication: PANIC ATTACK
     Route: 064
  2. PRENATAL VITAMINS [Concomitant]
     Route: 064
  3. TENORMIN [Concomitant]
     Route: 064

REACTIONS (2)
  - SYNDACTYLY [None]
  - DRUG EXPOSURE DURING PREGNANCY [None]
